FAERS Safety Report 16047474 (Version 2)
Quarter: 2019Q1

REPORT INFORMATION
  Report Type: Spontaneous
  Country: JP (occurrence: JP)
  Receive Date: 20190307
  Receipt Date: 20190323
  Transmission Date: 20190418
  Serious: Yes (Hospitalization)
  Sender: FDA-Public Use
  Company Number: JP-B.I. PHARMACEUTICALS,INC./RIDGEFIELD-2019-BI-009536

PATIENT
  Age: 74 Year
  Sex: Female
  Weight: 63 kg

DRUGS (3)
  1. DULOXETINE HYDROCHLORIDE. [Suspect]
     Active Substance: DULOXETINE HYDROCHLORIDE
     Indication: MUSCULOSKELETAL PAIN
     Route: 065
  2. MICARDIS [Suspect]
     Active Substance: TELMISARTAN
     Indication: HYPERTENSION
     Route: 065
  3. BENIDIPINE HYDROCHLORIDE [Concomitant]
     Active Substance: BENIDIPINE HYDROCHLORIDE
     Indication: HYPERTENSION
     Route: 065

REACTIONS (2)
  - Hypoosmolar state [Unknown]
  - Hyponatraemia [Unknown]
